FAERS Safety Report 14804557 (Version 1)
Quarter: 2018Q2

REPORT INFORMATION
  Report Type: Spontaneous
  Country: GB (occurrence: GB)
  Receive Date: 20180425
  Receipt Date: 20180425
  Transmission Date: 20180711
  Serious: Yes (Death, Hospitalization, Other)
  Sender: FDA-Public Use
  Company Number: GB-AUROBINDO-AUR-APL-2018-021802

PATIENT
  Age: 80 Year
  Sex: Male

DRUGS (18)
  1. AMLODIPINE [Suspect]
     Active Substance: AMLODIPINE BESYLATE
     Indication: HYPERTENSION
     Dosage: 10 MG, UNK
     Route: 048
     Dates: start: 20070101, end: 20130218
  2. SIMVAST [Concomitant]
     Indication: HYPERTENSION
     Dosage: UNK,FORMULATION:
     Route: 048
     Dates: start: 20060101
  3. BISOPROLOL [Concomitant]
     Active Substance: BISOPROLOL
     Indication: HYPERTENSION
     Dosage: UNK,FORMULATION.
     Route: 048
     Dates: start: 20130306
  4. FOLIC ACID. [Concomitant]
     Active Substance: FOLIC ACID
     Indication: BLOOD FOLATE DECREASED
     Dosage: UNK,FORMULATION:
     Route: 048
     Dates: start: 20130306
  5. FUROSEMIDE. [Concomitant]
     Active Substance: FUROSEMIDE
     Indication: HYPERTENSION
     Dosage: UNK,FORMULATION:
     Route: 048
     Dates: start: 20020101
  6. DOXAZOSIN [Concomitant]
     Active Substance: DOXAZOSIN\DOXAZOSIN MESYLATE
     Indication: HYPERTENSION
     Dosage: UNK
     Route: 048
     Dates: start: 20080101
  7. SIMVAST [Concomitant]
     Indication: BLOOD CHOLESTEROL
     Dosage: UNK
     Route: 065
  8. DEXAMETHASONE. [Concomitant]
     Active Substance: DEXAMETHASONE
     Indication: CAUDA EQUINA SYNDROME
     Dosage: UNK
     Route: 065
  9. BICALUTAMIDE. [Concomitant]
     Active Substance: BICALUTAMIDE
     Indication: DISEASE PROGRESSION
     Dosage: UNK,FORMULATION:
     Route: 048
     Dates: start: 20130415
  10. DEXAMETHASONE. [Concomitant]
     Active Substance: DEXAMETHASONE
     Indication: PROSTATE CANCER
     Dosage: UNK,FORMULATION:
     Route: 048
     Dates: start: 20121201
  11. SPIRON                             /00006201/ [Concomitant]
     Active Substance: SPIRONOLACTONE
     Indication: CARDIAC FAILURE CONGESTIVE
     Dosage: UNK,FORMULATION:
     Route: 048
     Dates: start: 20130305
  12. DEGARELIX [Suspect]
     Active Substance: DEGARELIX
     Dosage: 80 MG, MONTHLY
     Route: 058
     Dates: start: 201301
  13. GLICLAZIDE [Concomitant]
     Active Substance: GLICLAZIDE
     Indication: DIABETES MELLITUS
     Dosage: UNK,FORMULATION.
     Route: 048
     Dates: start: 20060101, end: 20121201
  14. ZOLEDRONIC ACID [Concomitant]
     Active Substance: ZOLEDRONIC ACID
     Indication: METASTASES TO BONE
     Dosage: UNK,FORMULATION:
     Route: 042
     Dates: start: 20130215
  15. DEGARELIX [Suspect]
     Active Substance: DEGARELIX
     Indication: PROSTATE CANCER
     Dosage: 240 MG, UNK
     Route: 058
     Dates: start: 20121217
  16. INSULIN [Concomitant]
     Active Substance: INSULIN NOS
     Indication: DIABETES MELLITUS
     Dosage: UNK,FORMULATION.
     Route: 058
     Dates: start: 20121201
  17. FENTANYL. [Concomitant]
     Active Substance: FENTANYL
     Indication: PAIN
     Dosage: UNK,FORMULATION.
     Route: 058
     Dates: start: 20130820
  18. RAMIPRIL. [Concomitant]
     Active Substance: RAMIPRIL
     Indication: HYPERTENSION
     Dosage: UNK,FORMULATION:
     Route: 048
     Dates: start: 20080101

REACTIONS (7)
  - Cardiac failure congestive [Not Recovered/Not Resolved]
  - Left ventricular hypertrophy [Not Recovered/Not Resolved]
  - Diabetes mellitus [Fatal]
  - Prostate cancer metastatic [Fatal]
  - Hypertension [Fatal]
  - Prostate cancer [Fatal]
  - Hypercholesterolaemia [Fatal]

NARRATIVE: CASE EVENT DATE: 20130218
